FAERS Safety Report 21755253 (Version 1)
Quarter: 2022Q4

REPORT INFORMATION
  Report Type: Spontaneous
  Country: US (occurrence: US)
  Receive Date: 20221220
  Receipt Date: 20221220
  Transmission Date: 20230113
  Serious: Yes (Hospitalization, Other)
  Sender: FDA-Public Use
  Company Number: US-BIOVITRUM-2022US14586

PATIENT
  Sex: Male
  Weight: 5 kg

DRUGS (6)
  1. SYNAGIS [Suspect]
     Active Substance: PALIVIZUMAB
     Indication: Antiviral prophylaxis
     Dosage: SYNAGIS 50 MG SDV/INJ PF 0.5 ML 1^S
     Dates: start: 202210
  2. SYNAGIS [Suspect]
     Active Substance: PALIVIZUMAB
     Indication: Chronic obstructive pulmonary disease
  3. SYNAGIS [Suspect]
     Active Substance: PALIVIZUMAB
     Indication: Premature baby
  4. SYNAGIS [Suspect]
     Active Substance: PALIVIZUMAB
     Indication: Patent ductus arteriosus
  5. IRON\VITAMINS [Concomitant]
     Active Substance: IRON\VITAMINS
  6. SYNAGIS [Suspect]
     Active Substance: PALIVIZUMAB
     Indication: Lower respiratory tract infection

REACTIONS (2)
  - Intestinal perforation [Unknown]
  - Illness [Unknown]
